FAERS Safety Report 6213164-4 (Version None)
Quarter: 2009Q2

REPORT INFORMATION
  Report Type: 
  Country: None (occurrence: None)
  Receive Date: 20090528
  Receipt Date: 20090403
  Transmission Date: 20091009
  Serious: No
  Sender: FDA-Public Use
  Company Number: MC200900130

PATIENT
  Age: 75 Year
  Sex: Male

DRUGS (1)
  1. CLEVIPREX [Suspect]
     Indication: HYPERTENSION
     Dosage: INTRAVENOUS
     Route: 042
     Dates: start: 20090402, end: 20090402

REACTIONS (1)
  - DRUG INEFFECTIVE [None]
